FAERS Safety Report 5157493-4 (Version None)
Quarter: 2006Q4

REPORT INFORMATION
  Report Type: 
  Country: None (occurrence: None)
  Receive Date: 20061127
  Receipt Date: 20051117
  Transmission Date: 20070319
  Serious: Yes (Hospitalization)
  Sender: FDA-Public Use
  Company Number: DE-GLAXOSMITHKLINE-B0400795A

PATIENT
  Age: 64 Year
  Sex: Female
  Weight: 69 kg

DRUGS (1)
  1. TOPOTECAN [Suspect]
     Indication: OVARIAN CANCER
     Dosage: 2.18MG PER DAY
     Route: 042
     Dates: start: 20051028, end: 20051101

REACTIONS (4)
  - BLOOD POTASSIUM DECREASED [None]
  - FATIGUE [None]
  - ILEUS [None]
  - VOMITING [None]
